FAERS Safety Report 7361946-8 (Version None)
Quarter: 2011Q1

REPORT INFORMATION
  Report Type: 
  Country: None (occurrence: None)
  Receive Date: 20110318
  Receipt Date: 20110307
  Transmission Date: 20110831
  Serious: Yes (Other)
  Sender: FDA-Public Use
  Company Number: PHHY2011GB18553

PATIENT
  Age: 17 Year
  Sex: Male

DRUGS (5)
  1. DEXRAZOXANE [Suspect]
  2. TACROLIMUS [Suspect]
     Indication: IMMUNOSUPPRESSION
     Dosage: UNK
  3. DOXORUBICIN HCL [Suspect]
  4. METHOTREXATE [Suspect]
  5. MERCAPTOPURINE [Suspect]

REACTIONS (9)
  - WEIGHT DECREASED [None]
  - MEDIASTINAL DISORDER [None]
  - LYMPHADENOPATHY [None]
  - MALAISE [None]
  - RENAL IMPAIRMENT [None]
  - ABDOMINAL PAIN [None]
  - EPSTEIN-BARR VIRUS ASSOCIATED LYMPHOPROLIFERATIVE DISORDER [None]
  - NIGHT SWEATS [None]
  - VIRAL INFECTION [None]
